FAERS Safety Report 25878942 (Version 1)
Quarter: 2025Q4

REPORT INFORMATION
  Report Type: Report from Study
  Country: US (occurrence: US)
  Receive Date: 20251003
  Receipt Date: 20251003
  Transmission Date: 20260118
  Serious: Yes (Hospitalization)
  Sender: ABBVIE
  Company Number: US-ABBVIE-6482970

PATIENT
  Age: 73 Year
  Sex: Female

DRUGS (1)
  1. RINVOQ [Suspect]
     Active Substance: UPADACITINIB
     Indication: Crohn^s disease
     Route: 048
     Dates: start: 20250917

REACTIONS (5)
  - Asthenia [Unknown]
  - Renal impairment [Unknown]
  - Dehydration [Unknown]
  - Loss of consciousness [Unknown]
  - Fatigue [Unknown]

NARRATIVE: CASE EVENT DATE: 20250901
